FAERS Safety Report 22139975 (Version 1)
Quarter: 2023Q1

REPORT INFORMATION
  Report Type: Spontaneous
  Country: US (occurrence: US)
  Receive Date: 20230327
  Receipt Date: 20230327
  Transmission Date: 20230418
  Serious: Yes (Death, Hospitalization, Other)
  Sender: FDA-Public Use
  Company Number: US-STERISCIENCE B.V.-2023-ST-001049

PATIENT
  Age: 35 Year
  Sex: Female

DRUGS (2)
  1. ONDANSETRON [Suspect]
     Active Substance: ONDANSETRON
     Indication: Alcohol poisoning
     Dosage: INTRAVENOUS INFUSION
     Route: 042
  2. KETOROLAC [Suspect]
     Active Substance: KETOROLAC TROMETHAMINE
     Indication: Alcohol poisoning
     Dosage: INTRAVENOUS INFUSION
     Route: 042

REACTIONS (4)
  - Cardiac arrest [Fatal]
  - Ventricular fibrillation [Fatal]
  - Ventricular tachycardia [Fatal]
  - Off label use [Unknown]
